FAERS Safety Report 19986424 (Version 1)
Quarter: 2021Q4

REPORT INFORMATION
  Report Type: Spontaneous
  Country: SE (occurrence: SE)
  Receive Date: 20211022
  Receipt Date: 20211022
  Transmission Date: 20220303
  Serious: Yes (Disabling)
  Sender: FDA-Public Use
  Company Number: SE-NOVARTISPH-NVSC2021SE241811

PATIENT
  Age: 76 Year
  Sex: Female

DRUGS (1)
  1. ZOMETA [Suspect]
     Active Substance: ZOLEDRONIC ACID
     Indication: Metastases to bone
     Dosage: 4 MG/5 ML, THE LATEST DOSE (4 MG)
     Route: 065
     Dates: start: 20150326, end: 20210526

REACTIONS (4)
  - Nerve injury [Unknown]
  - Peripheral swelling [Unknown]
  - Hypoaesthesia [Unknown]
  - Influenza like illness [Unknown]
